FAERS Safety Report 5953500-7 (Version None)
Quarter: 2008Q4

REPORT INFORMATION
  Report Type: 
  Country: None (occurrence: None)
  Receive Date: 20081114
  Receipt Date: 20081021
  Transmission Date: 20090506
  Serious: Yes (Hospitalization)
  Sender: FDA-Public Use
  Company Number: PHHO2007TR06152

PATIENT
  Sex: Female

DRUGS (4)
  1. LDT600 LDT+TAB [Suspect]
     Indication: HEPATITIS B
     Dosage: 600 MG, UNK
     Route: 048
     Dates: start: 20070323, end: 20070402
  2. SPIRONOLACTONE [Concomitant]
  3. FUROSEMIDE [Concomitant]
  4. DIURETICS [Concomitant]
     Dates: end: 20070328

REACTIONS (2)
  - ASCITES [None]
  - HYPONATRAEMIA [None]
